FAERS Safety Report 8176615-4 (Version None)
Quarter: 2012Q1

REPORT INFORMATION
  Report Type: 
  Country: None (occurrence: None)
  Receive Date: 20120301
  Receipt Date: 20120224
  Transmission Date: 20120608
  Serious: Yes (Life-Threatening, Other)
  Sender: FDA-Public Use
  Company Number: US-JNJFOC-20120213248

PATIENT
  Age: 62 Year
  Sex: Female

DRUGS (3)
  1. CYMBALTA [Concomitant]
     Indication: DEPRESSION
     Dosage: 60 MG DAILY
     Route: 048
  2. CYMBALTA [Concomitant]
     Indication: PAIN
     Dosage: 60 MG DAILY
     Route: 048
  3. NUCYNTA [Suspect]
     Indication: PAIN
     Route: 048
     Dates: start: 20111124, end: 20111124

REACTIONS (3)
  - SEDATION [None]
  - DEPRESSED LEVEL OF CONSCIOUSNESS [None]
  - EYE DISORDER [None]
